FAERS Safety Report 9613137 (Version 2)
Quarter: 2013Q4

REPORT INFORMATION
  Report Type: Report from Study
  Country: US (occurrence: US)
  Receive Date: 20131010
  Receipt Date: 20131010
  Transmission Date: 20140711
  Serious: Yes (Death, Life-Threatening, Disabling, Other)
  Sender: FDA-Public Use
  Company Number: US-PFIZER INC-2013281206

PATIENT
  Age: 20 Year
  Sex: Male
  Weight: 68.3 kg

DRUGS (23)
  1. MYLOTARG [Suspect]
     Indication: ACUTE MYELOID LEUKAEMIA RECURRENT
     Dosage: 3 MG/M2, MOST RECENT DOSE BEFORE THE EVENT: 5.31
     Route: 042
     Dates: start: 20130919, end: 20130919
  2. CYTOSAR [Suspect]
     Dosage: UNK
     Route: 042
     Dates: start: 20130919, end: 20130924
  3. AMBISOME [Suspect]
     Indication: INFECTION
  4. PRILOSEC [Concomitant]
     Dosage: UNK
     Dates: start: 20130914
  5. PEPCID [Concomitant]
     Dosage: UNK
     Dates: start: 20130912
  6. MYLANTA [Concomitant]
     Dosage: FORMULATION: SOLUTION.
     Dates: start: 20130911
  7. TUMS [Concomitant]
     Dosage: UNK
     Dates: start: 20130910
  8. ZOVIRAX [Concomitant]
     Dosage: UNK
     Dates: start: 20130904
  9. ATIVAN [Concomitant]
     Dosage: FORMULATION: IV SOLUTION
     Route: 042
     Dates: start: 20130905
  10. BACTRIM/SEPTRA [Concomitant]
     Dosage: UNK
     Dates: start: 20130907
  11. DIFLUCAN [Concomitant]
     Dosage: UNK
     Dates: start: 20130905
  12. VANCOCIN [Concomitant]
     Dosage: UNK
     Route: 042
     Dates: start: 20130911
  13. FORTAZ [Concomitant]
     Dosage: UNK
     Route: 042
     Dates: start: 20130911
  14. TYLENOL [Concomitant]
     Dosage: UNK
     Dates: start: 20130913
  15. BENADRYL [Concomitant]
     Dosage: UNK
     Route: 042
     Dates: start: 20130905
  16. ACTIGALL [Concomitant]
     Dosage: 300 MG
     Dates: start: 20130919
  17. NAPROSYN [Concomitant]
     Dosage: UNK
     Dates: start: 20130919
  18. MIRALAX/GLYCOLAX [Concomitant]
     Dosage: UNK
     Dates: start: 20130921
  19. ZOFRAN [Concomitant]
     Dosage: UNK
     Route: 042
     Dates: start: 20130919
  20. SOLU-MEDROL [Concomitant]
     Dosage: UNK
     Route: 042
     Dates: start: 20130919, end: 20130919
  21. PRED-FORTE [Concomitant]
     Dosage: PREDNISOLONE 1%
     Dates: start: 20130919, end: 20130925
  22. DECADRON [Concomitant]
     Dosage: UNK
     Route: 042
     Dates: start: 20130913, end: 20130924
  23. COLACE [Concomitant]
     Dosage: UNK
     Dates: start: 20130919

REACTIONS (7)
  - Sepsis [Fatal]
  - Bacterial infection [Recovering/Resolving]
  - Pneumonia [Not Recovered/Not Resolved]
  - Respiratory distress [Not Recovered/Not Resolved]
  - Pyrexia [Not Recovered/Not Resolved]
  - Conjunctivitis [Recovered/Resolved]
  - Blood creatinine increased [Not Recovered/Not Resolved]
